FAERS Safety Report 24794587 (Version 1)
Quarter: 2024Q4

REPORT INFORMATION
  Report Type: Spontaneous
  Country: IE (occurrence: IE)
  Receive Date: 20241231
  Receipt Date: 20241231
  Transmission Date: 20250115
  Serious: Yes (Hospitalization)
  Sender: FERRING
  Company Number: None

PATIENT

DRUGS (4)
  1. MENOPUR [Suspect]
     Active Substance: FOLLITROPIN\LUTEINIZING HORMONE
     Indication: Controlled ovarian stimulation
     Dosage: 150 INTERNATIONAL UNIT, STATED AS LOW DOSE
     Route: 030
     Dates: start: 20241122, end: 20241204
  2. BUSERELIN ACETATE [Suspect]
     Active Substance: BUSERELIN ACETATE
     Indication: Oocyte harvest
     Dosage: 0.5 ML
     Route: 030
     Dates: start: 20241204, end: 20241204
  3. CETROTIDE [Suspect]
     Active Substance: CETRORELIX ACETATE
     Indication: Oocyte harvest
     Dosage: 0.25 MG
     Route: 030
     Dates: start: 20241128, end: 20241204
  4. AMOXICILLIN\CLAVULANATE POTASSIUM [Concomitant]
     Active Substance: AMOXICILLIN\CLAVULANATE POTASSIUM
     Indication: Infection prophylaxis
     Dosage: 1.2 G
     Route: 042
     Dates: start: 20241206, end: 20241206

REACTIONS (3)
  - Ovarian hyperstimulation syndrome [Recovered/Resolved]
  - Dysuria [Recovered/Resolved]
  - Dizziness [Recovered/Resolved]

NARRATIVE: CASE EVENT DATE: 20241209
